FAERS Safety Report 17524729 (Version 2)
Quarter: 2020Q2

REPORT INFORMATION
  Report Type: Spontaneous
  Country: US (occurrence: US)
  Receive Date: 20200310
  Receipt Date: 20200612
  Transmission Date: 20200713
  Serious: No
  Sender: FDA-Public Use
  Company Number: US-BRISTOL-MYERS SQUIBB COMPANY-BMS-2020-019672

PATIENT
  Age: 69 Year
  Sex: Female
  Weight: 114.3 kg

DRUGS (1)
  1. ELIQUIS [Suspect]
     Active Substance: APIXABAN
     Indication: THROMBOSIS PROPHYLAXIS
     Dosage: 5 MILLIGRAM, BID
     Route: 048

REACTIONS (8)
  - Blood creatinine increased [Unknown]
  - Fall [Unknown]
  - Glycosylated haemoglobin increased [Unknown]
  - Rash [Unknown]
  - Weight decreased [Unknown]
  - Injury [Unknown]
  - Blood urea increased [Unknown]
  - Blood glucose increased [Unknown]

NARRATIVE: CASE EVENT DATE: 20200303
